FAERS Safety Report 4357548-8 (Version None)
Quarter: 2004Q2

REPORT INFORMATION
  Report Type: 
  Country: None (occurrence: None)
  Receive Date: 20040510
  Receipt Date: 20040427
  Transmission Date: 20050107
  Serious: Yes (Hospitalization)
  Sender: FDA-Public Use
  Company Number: GB-JNJFOC-20040405774

PATIENT
  Age: 61 Year
  Sex: Female

DRUGS (7)
  1. REMICADE [Suspect]
     Indication: RHEUMATOID ARTHRITIS
     Dosage: 122 MG INTRAVENOUS
     Route: 042
     Dates: start: 20011107
  2. METHOTREXATE [Concomitant]
  3. THYROXINE (LEVOTHYROXINE SODIUM) [Concomitant]
  4. FERROUS SULPHATE (FERROUS SULFATE) [Concomitant]
  5. DICLOFENAC (DICLOFENAC) [Concomitant]
  6. FOLIC ACID [Concomitant]
  7. B12 (CYANOCOBALAMIN) [Concomitant]

REACTIONS (1)
  - FEMUR FRACTURE [None]
